FAERS Safety Report 4388781-7 (Version None)
Quarter: 2004Q2

REPORT INFORMATION
  Report Type: 
  Country: None (occurrence: None)
  Receive Date: 20040624
  Receipt Date: 20040614
  Transmission Date: 20050107
  Serious: Yes (Other)
  Sender: FDA-Public Use
  Company Number: A-US2003-02278

PATIENT
  Age: 67 Year
  Sex: Female

DRUGS (9)
  1. TRACLEER [Suspect]
     Indication: PULMONARY HYPERTENSION
     Dosage: 62.5 MG, BID : 125 MG, BID
     Dates: start: 20020801, end: 20020901
  2. TRACLEER [Suspect]
     Indication: PULMONARY HYPERTENSION
     Dosage: 62.5 MG, BID : 125 MG, BID
     Dates: start: 20020901, end: 20030101
  3. PREVACID [Concomitant]
  4. SPIRONOLACTONE [Concomitant]
  5. DIGITEK [Concomitant]
  6. AMARYL [Concomitant]
  7. PRECOSE [Concomitant]
  8. NADOLOL [Concomitant]
  9. REMODULIN [Concomitant]

REACTIONS (5)
  - ALANINE AMINOTRANSFERASE INCREASED [None]
  - ASPARTATE AMINOTRANSFERASE INCREASED [None]
  - BLOOD ALKALINE PHOSPHATASE INCREASED [None]
  - BLOOD BILIRUBIN INCREASED [None]
  - LIVER FUNCTION TEST ABNORMAL [None]
